FAERS Safety Report 13163798 (Version 2)
Quarter: 2017Q1

REPORT INFORMATION
  Report Type: Spontaneous
  Country: JP (occurrence: JP)
  Receive Date: 20170130
  Receipt Date: 20170307
  Transmission Date: 20170428
  Serious: Yes (Other)
  Sender: FDA-Public Use
  Company Number: JP-BAYER-2017-011956

PATIENT
  Age: 29 Year
  Sex: Female

DRUGS (5)
  1. ACETYLSALICYLIC ACID({=100 MG) [Suspect]
     Active Substance: ASPIRIN
     Indication: THROMBOSIS PROPHYLAXIS
     Dosage: 100 MG, QD
     Route: 048
  2. ACETYLSALICYLIC ACID({=100 MG) [Suspect]
     Active Substance: ASPIRIN
     Indication: THROMBOSIS PROPHYLAXIS
     Dosage: 100 MG, QD
     Route: 048
  3. PREDNISOLONE. [Concomitant]
     Active Substance: PREDNISOLONE
     Indication: TAKAYASU^S ARTERITIS
     Dosage: 10 MG, QD
  4. PREDNISOLONE. [Concomitant]
     Active Substance: PREDNISOLONE
     Indication: TAKAYASU^S ARTERITIS
     Dosage: 60 MG, QD
  5. PREDNISOLONE. [Concomitant]
     Active Substance: PREDNISOLONE
     Indication: TAKAYASU^S ARTERITIS
     Dosage: 5 MG, QD

REACTIONS (3)
  - Premature baby [Recovered/Resolved]
  - Hypertension [None]
  - Maternal exposure during pregnancy [Recovered/Resolved]
